FAERS Safety Report 5664275-3 (Version None)
Quarter: 2008Q1

REPORT INFORMATION
  Report Type: 
  Country: None (occurrence: None)
  Receive Date: 20080312
  Receipt Date: 20080227
  Transmission Date: 20080703
  Serious: Yes (Other)
  Sender: FDA-Public Use
  Company Number: 2008000468

PATIENT
  Age: 74 Year
  Sex: Male

DRUGS (4)
  1. TARCEVA [Suspect]
     Indication: COLORECTAL CANCER
     Dosage: 100 MG, QD, ORAL
     Route: 048
  2. IRINOTECAN (IRINOTECAN) (INJECTION FOR INFUSION) [Suspect]
     Dosage: 150 MG/M2, INTRAVENOUS
     Route: 042
  3. LEUCOVORIN CALCIUM [Suspect]
     Indication: COLORECTAL CANCER
     Dosage: 200 MG/M2, INTRAVENOUS
     Route: 042
  4. 5-FU (FLUOROURACIL) (INJECTION FOR INFUSION) [Suspect]
     Indication: COLORECTAL CANCER
     Dosage: 320 MG/M2, INTRAVENOUS
     Route: 042

REACTIONS (5)
  - DIARRHOEA [None]
  - DRUG INTERACTION [None]
  - DRUG TOXICITY [None]
  - NEUTROPENIA [None]
  - RASH [None]
